FAERS Safety Report 9613105 (Version 2)
Quarter: 2015Q2

REPORT INFORMATION
  Report Type: Spontaneous
  Country: CN (occurrence: CN)
  Receive Date: 20131010
  Receipt Date: 20150602
  Transmission Date: 20150821
  Serious: Yes (Death, Other)
  Sender: FDA-Public Use
  Company Number: PHHY2013CN110300

PATIENT
  Age: 68 Year
  Sex: Male

DRUGS (8)
  1. DOXORUBICIN [Suspect]
     Active Substance: DOXORUBICIN
     Indication: LANGERHANS^ CELL HISTIOCYTOSIS
     Dosage: 50 MG/M2, D1
     Route: 065
  2. PREDNISONE. [Suspect]
     Active Substance: PREDNISONE
     Dosage: 100 MG/M2, D1-5
     Route: 065
  3. VINCRISTINE [Suspect]
     Active Substance: VINCRISTINE
     Dosage: 1.4 MG/M2, D1
     Route: 065
  4. CYCLOPHOSPHAMIDE. [Suspect]
     Active Substance: CYCLOPHOSPHAMIDE
     Dosage: 750 MG/M2, D1
     Route: 065
  5. PREDNISONE. [Suspect]
     Active Substance: PREDNISONE
     Indication: LANGERHANS^ CELL HISTIOCYTOSIS
     Dosage: 100 MG/M2, D1-5
     Route: 065
     Dates: end: 20100423
  6. CYCLOPHOSPHAMIDE. [Suspect]
     Active Substance: CYCLOPHOSPHAMIDE
     Indication: LANGERHANS^ CELL HISTIOCYTOSIS
     Dosage: 750 MG/M2, D1
     Route: 065
     Dates: end: 20100423
  7. ETOPOSIDE. [Suspect]
     Active Substance: ETOPOSIDE
     Indication: LANGERHANS^ CELL HISTIOCYTOSIS
     Dosage: 100MG, D1-3
     Route: 065
  8. VINCRISTINE [Suspect]
     Active Substance: VINCRISTINE
     Indication: LANGERHANS^ CELL HISTIOCYTOSIS
     Dosage: 1.4 MG/M2, D1
     Route: 065
     Dates: end: 20100423

REACTIONS (3)
  - Langerhans^ cell histiocytosis [Unknown]
  - Death [Fatal]
  - Bone marrow failure [Unknown]
